FAERS Safety Report 8569615-3 (Version None)
Quarter: 2012Q3

REPORT INFORMATION
  Report Type: 
  Country: None (occurrence: None)
  Receive Date: 20120803
  Receipt Date: 20120412
  Transmission Date: 20120928
  Serious: No
  Sender: FDA-Public Use
  Company Number: US-ABBOTT-12P-163-0924805-00

PATIENT
  Sex: Female
  Weight: 88.984 kg

DRUGS (12)
  1. ALENDRONATE SODIUM [Concomitant]
     Indication: OSTEOPOROSIS
  2. FLUOXETINE HCL [Concomitant]
     Indication: PANIC ATTACK
  3. DIOVAN [Concomitant]
     Indication: HYPERTENSION
  4. TRAZODONE HYDROCHLORIDE [Concomitant]
     Indication: INSOMNIA
  5. DOC-Q-LAX [Concomitant]
     Indication: ILL-DEFINED DISORDER
  6. LORAZEPAM [Concomitant]
     Indication: PANIC ATTACK
  7. VIT D3 [Concomitant]
     Indication: PRODUCT USED FOR UNKNOWN INDICATION
  8. CALCIUM [Concomitant]
     Indication: PRODUCT USED FOR UNKNOWN INDICATION
  9. ALVESCO [Concomitant]
     Indication: PRODUCT USED FOR UNKNOWN INDICATION
  10. SPIRIVA [Concomitant]
     Indication: PRODUCT USED FOR UNKNOWN INDICATION
  11. FORADIL [Concomitant]
     Indication: CHRONIC OBSTRUCTIVE PULMONARY DISEASE
  12. NIASPAN [Suspect]
     Indication: BLOOD CHOLESTEROL

REACTIONS (2)
  - FEELING HOT [None]
  - FLUSHING [None]
